FAERS Safety Report 8085774-3 (Version None)
Quarter: 2012Q1

REPORT INFORMATION
  Report Type: 
  Country: None (occurrence: None)
  Receive Date: 20120128
  Receipt Date: 20110608
  Transmission Date: 20120608
  Serious: No
  Sender: FDA-Public Use
  Company Number: US-ABBOTT-11P-163-0731248-00

PATIENT
  Age: 47 Year
  Sex: Male

DRUGS (7)
  1. ATENOLOL [Concomitant]
     Indication: HYPERTENSION
     Dosage: 100 MG DAILY
  2. LISINOPRIL [Concomitant]
     Indication: HYPERTENSION
     Dosage: 20 MG DAILY
  3. VITAMIN TAB [Concomitant]
     Indication: PRODUCT USED FOR UNKNOWN INDICATION
     Dosage: DAILY
  4. CLOBETASOL [Concomitant]
     Indication: PSORIASIS
     Dosage: DAILY
  5. METHOTREXATE [Concomitant]
     Indication: PRODUCT USED FOR UNKNOWN INDICATION
     Dosage: 2.5 MG - 8 TABLETS WEEKLY
  6. HUMIRA [Suspect]
     Indication: PSORIASIS
     Dates: start: 20110601
  7. HYOSCYAMINE [Concomitant]
     Indication: IRRITABLE BOWEL SYNDROME
     Dosage: 375 MG - BID

REACTIONS (1)
  - INJECTION SITE HAEMORRHAGE [None]
